FAERS Safety Report 26143486 (Version 1)
Quarter: 2025Q4

REPORT INFORMATION
  Report Type: Report from Study
  Country: US (occurrence: US)
  Receive Date: 20251211
  Receipt Date: 20251211
  Transmission Date: 20260118
  Serious: Yes (Other)
  Sender: SANOFI AVENTIS
  Company Number: US-SA-2025SA365436

PATIENT
  Age: 78 Year
  Sex: Female

DRUGS (1)
  1. DUPILUMAB [Suspect]
     Active Substance: DUPILUMAB
     Indication: Asthma
     Dosage: 300 MG, QOW
     Route: 058
     Dates: start: 2025, end: 20251202

REACTIONS (12)
  - Pulmonary congestion [Unknown]
  - Pharyngeal swelling [Recovering/Resolving]
  - Paraesthesia oral [Recovering/Resolving]
  - Swelling [Recovering/Resolving]
  - Pyrexia [Unknown]
  - Chest discomfort [Unknown]
  - Cough [Unknown]
  - Dysphagia [Unknown]
  - Dyspnoea [Unknown]
  - Respiratory tract congestion [Unknown]
  - Illness [Unknown]
  - Eye swelling [Unknown]

NARRATIVE: CASE EVENT DATE: 20251101
